FAERS Safety Report 17828424 (Version 1)
Quarter: 2020Q2

REPORT INFORMATION
  Report Type: Spontaneous
  Country: US (occurrence: US)
  Receive Date: 20200526
  Receipt Date: 20200526
  Transmission Date: 20200714
  Serious: No
  Sender: FDA-Public Use
  Company Number: None

PATIENT
  Sex: Male

DRUGS (3)
  1. ENBREL [Suspect]
     Active Substance: ETANERCEPT
     Indication: ILL-DEFINED DISORDER
     Dosage: ?          OTHER FREQUENCY:EVERY7DAYS ;?
     Route: 058
     Dates: start: 20200501
  2. ENBREL [Suspect]
     Active Substance: ETANERCEPT
     Indication: PSORIASIS
     Dosage: ?          OTHER FREQUENCY:EVERY7DAYS ;?
     Route: 058
     Dates: start: 20200501
  3. ENBREL [Suspect]
     Active Substance: ETANERCEPT
     Indication: PSORIATIC ARTHROPATHY
     Dosage: ?          OTHER FREQUENCY:EVERY7DAYS ;?
     Route: 058
     Dates: start: 20200501

REACTIONS (1)
  - Therapy non-responder [None]
